FAERS Safety Report 5900616-7 (Version None)
Quarter: 2008Q3

REPORT INFORMATION
  Report Type: 
  Country: None (occurrence: None)
  Receive Date: 20080926
  Receipt Date: 20080916
  Transmission Date: 20090109
  Serious: Yes (Hospitalization)
  Sender: FDA-Public Use
  Company Number: JP-ABBOTT-07P-087-0361076-00

PATIENT
  Age: 76 Year
  Sex: Male
  Weight: 50 kg

DRUGS (7)
  1. LEUPROLIDE ACETATE [Suspect]
     Indication: PROSTATE CANCER
     Route: 058
     Dates: start: 20060817
  2. LEUPROLIDE ACETATE [Suspect]
     Dates: start: 20060619, end: 20060718
  3. BICALUTAMIDE [Suspect]
     Indication: PROSTATE CANCER
     Route: 048
     Dates: end: 20061115
  4. GLIMEPIRIDE [Concomitant]
     Indication: DIABETES MELLITUS
     Route: 048
  5. MAGNESIUM OXIDE HEAVY [Concomitant]
     Indication: CONSTIPATION
     Route: 048
  6. LENDORMIN D [Concomitant]
     Indication: INSOMNIA
     Route: 048
  7. ALLOPURINOL [Concomitant]
     Indication: DRUG USE FOR UNKNOWN INDICATION
     Route: 048

REACTIONS (8)
  - ECZEMA [None]
  - GASTRITIS [None]
  - HAEMATURIA [None]
  - IGA NEPHROPATHY [None]
  - INGUINAL HERNIA [None]
  - NEPHROGENIC ANAEMIA [None]
  - PNEUMONIA [None]
  - PROTEINURIA [None]
